FAERS Safety Report 6832886-5 (Version None)
Quarter: 2010Q3

REPORT INFORMATION
  Report Type: 
  Country: None (occurrence: None)
  Receive Date: 20100712
  Receipt Date: 20070314
  Transmission Date: 20110219
  Serious: No
  Sender: FDA-Public Use
  Company Number: US-PFIZER INC-2007022016

PATIENT
  Sex: Male
  Weight: 111.13 kg

DRUGS (16)
  1. CHANTIX [Suspect]
     Indication: SMOKING CESSATION THERAPY
     Dates: start: 20070111
  2. COFFEE [Suspect]
     Dates: start: 20070201
  3. LIPITOR [Concomitant]
  4. ACETYLSALICYLIC ACID [Concomitant]
  5. TOPROL-XL [Concomitant]
  6. PLAVIX [Concomitant]
  7. ALTACE [Concomitant]
  8. HYDROCHLOROTHIAZIDE [Concomitant]
  9. CARDURA [Concomitant]
  10. NEURONTIN [Concomitant]
  11. ATIVAN [Concomitant]
  12. AMBIEN [Concomitant]
  13. LEXAPRO [Concomitant]
  14. DARVOCET [Concomitant]
  15. TYLENOL (CAPLET) [Concomitant]
  16. MULTI-VITAMINS [Concomitant]

REACTIONS (3)
  - ABNORMAL DREAMS [None]
  - INSOMNIA [None]
  - MEMORY IMPAIRMENT [None]
